FAERS Safety Report 13094869 (Version 8)
Quarter: 2017Q2

REPORT INFORMATION
  Report Type: Report from Study
  Country: None (occurrence: FR)
  Receive Date: 20170106
  Receipt Date: 20170601
  Transmission Date: 20170830
  Serious: Yes (Hospitalization)
  Sender: FDA-Public Use
  Company Number: FR-ABBVIE-17P-056-1830117-00

PATIENT
  Age: 64 Year
  Sex: Male
  Weight: 68 kg

DRUGS (23)
  1. XYZALL [Concomitant]
     Active Substance: LEVOCETIRIZINE DIHYDROCHLORIDE
     Indication: PREMEDICATION
     Dates: start: 20160922
  2. PREDNISONE. [Suspect]
     Active Substance: PREDNISONE
     Indication: B-CELL LYMPHOMA
     Dosage: MOST RECENT DOSE PRIOR TO AE WAS 100 MG ON 26 DEC 2016
     Route: 048
     Dates: start: 20160922
  3. PANTOPRAZOLE [Concomitant]
     Active Substance: PANTOPRAZOLE
     Indication: GASTRITIS
     Dates: start: 20161004
  4. PANTOPRAZOLE [Concomitant]
     Active Substance: PANTOPRAZOLE
     Dates: start: 20160902
  5. COLCHIMAX [Concomitant]
     Active Substance: COLCHICINE\DICYCLOMINE HYDROCHLORIDE
     Indication: GOUT
     Dates: start: 20161202, end: 20161206
  6. BACTRIM [Concomitant]
     Active Substance: SULFAMETHOXAZOLE\TRIMETHOPRIM
     Indication: INFECTION
     Dates: start: 20161109
  7. RITUXIMAB [Suspect]
     Active Substance: RITUXIMAB
     Indication: B-CELL LYMPHOMA
     Dosage: MOST RECENT DOSE PRIOR TO AE WAS 700 MG ON 22 DEC 2016 AT 13:15
     Route: 042
     Dates: start: 20160922
  8. CYCLOPHOSPHAMIDE. [Suspect]
     Active Substance: CYCLOPHOSPHAMIDE
     Indication: B-CELL LYMPHOMA
     Dosage: MOST RECENT DOSE PRIOR TO AE WAS 1400 MG ON 22 DEC 2016
     Route: 042
     Dates: start: 20160922
  9. VALACICLOVIR [Concomitant]
     Active Substance: VALACYCLOVIR HYDROCHLORIDE
     Indication: INFECTION
     Dates: start: 20161109
  10. METHYLPREDNISOLONE. [Concomitant]
     Active Substance: METHYLPREDNISOLONE
     Indication: PROPHYLAXIS
     Dates: start: 20161201, end: 20161201
  11. TRIATEC [Concomitant]
     Active Substance: RAMIPRIL
     Indication: HYPERTENSION
     Dates: start: 2006
  12. ARANESP [Concomitant]
     Active Substance: DARBEPOETIN ALFA
     Indication: ANAEMIA
     Dates: start: 20161011
  13. VENETOCLAX [Suspect]
     Active Substance: VENETOCLAX
     Indication: B-CELL LYMPHOMA
     Dosage: DATE OF MOST RECENT DOSE OF PRIOR TO AE WAS 800MG ON  26 DEC 2016
     Route: 048
     Dates: start: 20160925
  14. DOXORUBICIN [Suspect]
     Active Substance: DOXORUBICIN
     Indication: B-CELL LYMPHOMA
     Dosage: MOST RECENT DOSE PRIOR TO AE WAS 90 MG  ON 22 DEC 2016
     Route: 042
     Dates: start: 20160922
  15. VINCRISTINE [Suspect]
     Active Substance: VINCRISTINE
     Indication: B-CELL LYMPHOMA
     Dosage: MOST RECENT DOSE PRIOR TO AE WAS 2 MG ON 22 DEC 2016
     Route: 042
     Dates: start: 20160922
  16. NEULASTA [Concomitant]
     Active Substance: PEGFILGRASTIM
     Indication: NEUTROPENIA
     Dates: start: 20161109
  17. METHOTREXATE. [Concomitant]
     Active Substance: METHOTREXATE
     Indication: PROPHYLAXIS
     Route: 037
     Dates: start: 20161201, end: 20161201
  18. CYTARABINE. [Concomitant]
     Active Substance: CYTARABINE
     Indication: PROPHYLAXIS
     Route: 037
     Dates: start: 20161201, end: 20161201
  19. DAFALGAN [Concomitant]
     Active Substance: ACETAMINOPHEN
     Indication: PREMEDICATION
     Dates: start: 20160922
  20. LODOZ [Concomitant]
     Active Substance: BISOPROLOL FUMARATE\HYDROCHLOROTHIAZIDE
     Indication: HYPERTENSION
     Dates: start: 2016
  21. NEULASTA [Concomitant]
     Active Substance: PEGFILGRASTIM
     Dates: start: 20161202, end: 20161202
  22. NEULASTA [Concomitant]
     Active Substance: PEGFILGRASTIM
     Dates: start: 20161223, end: 20161223
  23. FUNGIZONE [Concomitant]
     Active Substance: AMPHOTERICIN B
     Indication: APHTHOUS ULCER
     Dates: start: 20161117, end: 20161126

REACTIONS (2)
  - Sepsis [Recovered/Resolved]
  - Rectal haemorrhage [Recovered/Resolved]

NARRATIVE: CASE EVENT DATE: 20161226
